FAERS Safety Report 5684087-4 (Version None)
Quarter: 2008Q1

REPORT INFORMATION
  Report Type: 
  Country: None (occurrence: None)
  Receive Date: 20080328
  Receipt Date: 20070228
  Transmission Date: 20080703
  Serious: No
  Sender: FDA-Public Use
  Company Number: US-AMGEN-US213121

PATIENT
  Sex: Female

DRUGS (6)
  1. NEULASTA [Suspect]
     Indication: CHEMOTHERAPY
     Route: 065
     Dates: start: 20060801, end: 20061201
  2. ARANESP [Concomitant]
     Indication: CHEMOTHERAPY
     Route: 065
  3. NEXIUM [Concomitant]
     Route: 065
  4. PACLITAXEL [Concomitant]
     Route: 065
  5. CARBOPLATIN [Concomitant]
     Route: 065
     Dates: start: 20060801, end: 20061201
  6. PACLITAXEL [Concomitant]
     Route: 065
     Dates: start: 20060801, end: 20061201

REACTIONS (2)
  - BONE PAIN [None]
  - MUSCULOSKELETAL PAIN [None]
